FAERS Safety Report 24156630 (Version 3)
Quarter: 2024Q4

REPORT INFORMATION
  Report Type: Report from Study
  Country: US (occurrence: US)
  Receive Date: 20240731
  Receipt Date: 20241113
  Transmission Date: 20250115
  Serious: Yes (Hospitalization, Other)
  Sender: GILEAD
  Company Number: US-GILEAD-2024-0682289

PATIENT
  Age: 74 Year
  Sex: Female

DRUGS (2)
  1. AZTREONAM LYSINE [Suspect]
     Active Substance: AZTREONAM LYSINE
     Indication: Pseudomonas infection
     Dosage: 1 VIAL 3 TIMES DAILY (75MG INHALE THE CONTENTS OF 1 AMPULE 3 TIMES A DAY FOR 28 DAYS, 28 DAYS OFF)
     Route: 065
     Dates: start: 20230404
  2. AZTREONAM LYSINE [Suspect]
     Active Substance: AZTREONAM LYSINE
     Indication: Asthma
     Dosage: 1 DOSAGE FORM, TID
     Route: 065
     Dates: start: 20240605

REACTIONS (5)
  - Pneumonia [Recovering/Resolving]
  - Thrombosis [Recovered/Resolved]
  - Intentional dose omission [Recovered/Resolved]
  - Off label use [Not Recovered/Not Resolved]
  - Circumstance or information capable of leading to medication error [Not Recovered/Not Resolved]

NARRATIVE: CASE EVENT DATE: 20230404
